FAERS Safety Report 6073181-4 (Version None)
Quarter: 2009Q1

REPORT INFORMATION
  Report Type: 
  Country: None (occurrence: None)
  Receive Date: 20090206
  Receipt Date: 20090130
  Transmission Date: 20090719
  Serious: Yes (Hospitalization)
  Sender: FDA-Public Use
  Company Number: TCI2009A00341

PATIENT
  Age: 65 Year
  Sex: Male

DRUGS (4)
  1. ACTOS [Suspect]
     Indication: DIABETES MELLITUS
     Dosage: 15 MG (15 MG, 1 IN 1 D) PER ORAL
     Route: 048
     Dates: start: 20080807, end: 20090121
  2. DIBETOS (BUFORMIN HYDROCHLORIDE) [Concomitant]
  3. AMARYL [Concomitant]
  4. BROTIZOLAM M (BROTIZOLAM) [Concomitant]

REACTIONS (2)
  - DIABETES MELLITUS INADEQUATE CONTROL [None]
  - PLATELET COUNT DECREASED [None]
